FAERS Safety Report 11390055 (Version 14)
Quarter: 2015Q4

REPORT INFORMATION
  Report Type: Spontaneous
  Country: IT (occurrence: IT)
  Receive Date: 20150818
  Receipt Date: 20151227
  Transmission Date: 20160304
  Serious: Yes (Hospitalization)
  Sender: FDA-Public Use
  Company Number: IT-ROCHE-1611296

PATIENT
  Age: 48 Year
  Sex: Male
  Weight: 74 kg

DRUGS (49)
  1. RIVOTRIL [Suspect]
     Active Substance: CLONAZEPAM
     Route: 048
     Dates: start: 20150420
  2. RIVOTRIL [Suspect]
     Active Substance: CLONAZEPAM
     Dosage: 2.5 MG/ML ORAL DROPS, SOLUTION^ 10 ML BOTTLE
     Route: 048
     Dates: start: 20150509, end: 20150509
  3. RIVOTRIL [Suspect]
     Active Substance: CLONAZEPAM
     Dosage: ^2 MG TABLETS^ 20 TABLETS
     Route: 048
     Dates: start: 20150428, end: 20150428
  4. LEXOTAN [Suspect]
     Active Substance: BROMAZEPAM
     Route: 048
     Dates: start: 20150417, end: 20150417
  5. LEXOTAN [Suspect]
     Active Substance: BROMAZEPAM
     Dosage: 2.5 MG/ML -20 ML BOTTLE WITH DROPPER
     Route: 048
     Dates: start: 20150502, end: 20150502
  6. DEPAKIN [Suspect]
     Active Substance: VALPROATE SODIUM
     Indication: PSYCHOTIC DISORDER
     Dosage: 500 MG 40 TABLETS IN AL/AL BLISTER PACK
     Route: 048
     Dates: start: 20150308
  7. DEPAKIN [Suspect]
     Active Substance: VALPROATE SODIUM
     Dosage: ^CHRONO 500 MG PROLONGED-RELEASE TABLETS^
     Route: 048
     Dates: start: 20150312
  8. DEPAKIN [Suspect]
     Active Substance: VALPROATE SODIUM
     Route: 048
     Dates: start: 20150424
  9. DEPAKIN [Suspect]
     Active Substance: VALPROATE SODIUM
     Dosage: 500 MG 40 TABLETS IN ALU/ALU BLISTER PACK
     Route: 048
     Dates: start: 20150509, end: 20150509
  10. EN [Suspect]
     Active Substance: DELORAZEPAM
     Indication: PRODUCT USED FOR UNKNOWN INDICATION
     Route: 048
     Dates: start: 20150424, end: 20150424
  11. ABILIFY [Concomitant]
     Active Substance: ARIPIPRAZOLE
     Indication: BIPOLAR DISORDER
  12. RIVOTRIL [Suspect]
     Active Substance: CLONAZEPAM
     Dosage: 2.5 MG/ML ORAL DROPS, SOLUTION^ 10 ML BOTTLE
     Route: 048
     Dates: start: 20150504, end: 20150504
  13. RIVOTRIL [Suspect]
     Active Substance: CLONAZEPAM
     Dosage: 2.5 MG/ML ORAL DROPS, SOLUTION^ 10 ML BOTTLE
     Route: 048
     Dates: start: 20150512, end: 20150512
  14. FEVARIN [Suspect]
     Active Substance: FLUVOXAMINE MALEATE
     Indication: DEPRESSION
     Dosage: 100 MG FILM-COATED TABLETS^ 30 TABLETS
     Route: 048
     Dates: start: 20150308, end: 20150309
  15. TRITTICO [Suspect]
     Active Substance: TRAZODONE HYDROCHLORIDE
     Indication: INSOMNIA
     Dosage: 75 MG PROLONGED-RELEASE TABLETS - 30 SCORED TABLET
     Route: 048
     Dates: start: 20151010, end: 20151010
  16. OLANZAPINE. [Concomitant]
     Active Substance: OLANZAPINE
     Indication: DEPRESSION
     Dosage: 210 MG-POWDER IN VIAL(GLASS) AND SOLVENT 3ML IN VIAL
     Route: 030
     Dates: start: 20140101, end: 20150512
  17. RIVOTRIL [Suspect]
     Active Substance: CLONAZEPAM
     Dosage: ^2.5 MG/ML ORAL DROPS, SOLUTION^
     Route: 048
     Dates: start: 20150312
  18. CARNITINE [Concomitant]
     Active Substance: CARNITINE
     Route: 042
  19. RIVOTRIL [Suspect]
     Active Substance: CLONAZEPAM
     Route: 048
     Dates: start: 20150421, end: 20150421
  20. DEPAKIN [Suspect]
     Active Substance: VALPROATE SODIUM
     Dosage: 500 MG MODIFIED-RELEASE GRANULES^ 30 SACHETS
     Route: 048
     Dates: start: 20140101
  21. DEPAKIN [Suspect]
     Active Substance: VALPROATE SODIUM
     Dosage: CHRONO 500 MG PROLONGED-RELEASE TABLETS^
     Route: 048
     Dates: start: 20150504, end: 20150504
  22. ABILIFY [Concomitant]
     Active Substance: ARIPIPRAZOLE
     Indication: PSYCHOTIC DISORDER
     Dosage: 7.5 MG/ML GLASS VIAL 1 X 1.3 ML VIAL
     Route: 030
     Dates: start: 20150601
  23. RIVOTRIL [Suspect]
     Active Substance: CLONAZEPAM
     Indication: ANXIETY
     Dosage: 2.5 MG/ML ORAL DROPS, SOLUTION
     Route: 048
     Dates: start: 20150620, end: 20150620
  24. RIVOTRIL [Suspect]
     Active Substance: CLONAZEPAM
     Dosage: 2.5 MG/ML ORAL DROPS, SOLUTION 10 ML BOTTLE
     Route: 048
     Dates: start: 20150211, end: 20150211
  25. RIVOTRIL [Suspect]
     Active Substance: CLONAZEPAM
     Route: 048
     Dates: start: 20140101
  26. LEXOTAN [Suspect]
     Active Substance: BROMAZEPAM
     Indication: ANXIETY
     Dosage: 2.5 MG/ML ORAL DROPS, SOLUTIONS
     Route: 048
     Dates: start: 20150211, end: 20150211
  27. DEPAKIN [Suspect]
     Active Substance: VALPROATE SODIUM
     Route: 048
     Dates: start: 20150403, end: 20150403
  28. DEPAKIN [Suspect]
     Active Substance: VALPROATE SODIUM
     Dosage: 1000 MG MODIFIED RELEASE GRANULES^ 50 SACHETS
     Route: 048
     Dates: start: 20140101, end: 20150406
  29. TAVOR [Suspect]
     Active Substance: LORAZEPAM
     Indication: DEPRESSION
     Dosage: 2.5 MG TABLETS,  20 TABLETS
     Route: 048
     Dates: start: 20150406, end: 20150406
  30. RIVOTRIL [Suspect]
     Active Substance: CLONAZEPAM
     Route: 048
     Dates: start: 20150413, end: 20150413
  31. RIVOTRIL [Suspect]
     Active Substance: CLONAZEPAM
     Route: 048
     Dates: start: 20150424, end: 20150424
  32. RIVOTRIL [Suspect]
     Active Substance: CLONAZEPAM
     Indication: DEPRESSION
     Dosage: 2 MG TABLETS^ 20 TABLETS
     Route: 048
     Dates: start: 20150403, end: 20150403
  33. DEPAKIN [Suspect]
     Active Substance: VALPROATE SODIUM
     Dosage: 500 MG 40 TABLETS IN ALU/ALU BLISTER PACK
     Route: 048
     Dates: start: 20150512, end: 20150512
  34. RIVOTRIL [Suspect]
     Active Substance: CLONAZEPAM
     Indication: DEPRESSION
     Dosage: 2.5 MG/ML ORAL DROPS, SOLUTION 10 ML BOTTLE
     Route: 048
     Dates: start: 20150308, end: 20150309
  35. RIVOTRIL [Suspect]
     Active Substance: CLONAZEPAM
     Dosage: 2.5 MG/ML ORAL DROPS, SOLUTION 10 ML BOTTLE
     Route: 048
     Dates: start: 20150525, end: 20150525
  36. RIVOTRIL [Suspect]
     Active Substance: CLONAZEPAM
     Dosage: 2.5 MG/ML ORAL DROPS, SOLUTION^ 10 ML
     Route: 048
     Dates: start: 20150403, end: 20150403
  37. RIVOTRIL [Suspect]
     Active Substance: CLONAZEPAM
     Dosage: 2.5 MG/ML ORAL DROPS, SOLUTION^ 10 ML BOTTLE
     Route: 048
     Dates: start: 20150406, end: 20150406
  38. LEXOTAN [Suspect]
     Active Substance: BROMAZEPAM
     Dosage: ^2.5 MG/ML -20 ML BOTTLE WITH DROPPER
     Route: 048
     Dates: start: 20150504, end: 20150504
  39. DEPAKIN [Suspect]
     Active Substance: VALPROATE SODIUM
     Route: 048
     Dates: start: 20150525, end: 20150525
  40. DEPAKIN [Suspect]
     Active Substance: VALPROATE SODIUM
     Route: 048
     Dates: start: 20140101, end: 20150502
  41. OLANZAPINE. [Concomitant]
     Active Substance: OLANZAPINE
     Indication: PSYCHOTIC DISORDER
     Dosage: 210 MG-POWDER IN VIAL(GLASS) AND SOLVENT 3ML IN VIAL
     Route: 030
     Dates: start: 20150101, end: 20150608
  42. RIVOTRIL [Suspect]
     Active Substance: CLONAZEPAM
     Dosage: ^2.5 MG/ML ORAL DROPS, SOLUTION^ 10ML BOTTLE
     Route: 048
     Dates: start: 20140101
  43. RIVOTRIL [Suspect]
     Active Substance: CLONAZEPAM
     Dosage: 2.5 MG/ML ORAL DROPS, SOLUTION 10 ML BOTTLE
     Route: 048
     Dates: start: 20150327
  44. RIVOTRIL [Suspect]
     Active Substance: CLONAZEPAM
     Route: 048
     Dates: start: 20150417, end: 20150417
  45. RIVOTRIL [Suspect]
     Active Substance: CLONAZEPAM
     Indication: ANXIETY
     Dosage: 30 * 2MG
     Route: 048
     Dates: start: 20151010, end: 20151010
  46. DEPAKIN [Suspect]
     Active Substance: VALPROATE SODIUM
     Dosage: 500 MG MODIFIED-RELEASE GRANULES^ 30 SACHETS
     Route: 048
     Dates: start: 20150327
  47. AUGMENTIN [Suspect]
     Active Substance: AMOXICILLIN\CLAVULANATE POTASSIUM
     Indication: INSOMNIA
     Dosage: ^875 MG/125 MG POWDER FOR ORAL SUSPENSION^
     Route: 048
     Dates: start: 20150312
  48. VALDORM [Concomitant]
     Active Substance: VALERIAN
     Indication: INSOMNIA
     Dosage: 15 MG CAPSULES^ 30 CAPSULES
     Route: 048
     Dates: start: 20140101
  49. FLUVOXAMINA [Concomitant]
     Active Substance: FLUVOXAMINE
     Indication: DEPRESSED MOOD
     Dosage: 100 MG FILM-COATED TABLETS 30 TABLETS
     Route: 048
     Dates: start: 20140101

REACTIONS (17)
  - Minor cognitive motor disorder [Recovered/Resolved]
  - Dysarthria [Recovered/Resolved]
  - Balance disorder [Recovered/Resolved]
  - Sopor [Recovering/Resolving]
  - Overdose [Unknown]
  - Somnolence [Recovered/Resolved]
  - Disorientation [Recovered/Resolved]
  - Confusional state [Recovered/Resolved]
  - Overdose [Unknown]
  - Psychomotor retardation [Recovered/Resolved]
  - Bradyphrenia [Recovered/Resolved]
  - Drug abuse [Unknown]
  - Ataxia [Recovered/Resolved]
  - Headache [Unknown]
  - Intentional self-injury [Unknown]
  - Apraxia [Recovered/Resolved]
  - Abdominal pain [Recovered/Resolved]

NARRATIVE: CASE EVENT DATE: 20150211
